FAERS Safety Report 13266980 (Version 2)
Quarter: 2017Q1

REPORT INFORMATION
  Report Type: Spontaneous
  Country: AU (occurrence: AU)
  Receive Date: 20170224
  Receipt Date: 20170307
  Transmission Date: 20170428
  Serious: Yes (Other)
  Sender: FDA-Public Use
  Company Number: AU-PFIZER INC-2017081784

PATIENT
  Age: 62 Year
  Sex: Male

DRUGS (10)
  1. IMDUR [Suspect]
     Active Substance: ISOSORBIDE MONONITRATE
     Dosage: 90 MG, AT BEDTIME
     Route: 065
  2. CARVEDILOL. [Concomitant]
     Active Substance: CARVEDILOL
     Dosage: UNK
  3. ATORVASTATIN [Concomitant]
     Active Substance: ATORVASTATIN
     Dosage: UNK
  4. HYDRALAZINE [Concomitant]
     Active Substance: HYDRALAZINE HYDROCHLORIDE
     Dosage: UNK
  5. RAMIPRIL. [Suspect]
     Active Substance: RAMIPRIL
     Dosage: 0.625 MG, (AT BEDTIME)
     Route: 048
  6. TICAGRELOR [Suspect]
     Active Substance: TICAGRELOR
     Dosage: 90 MG, 2X/DAY
     Route: 048
  7. IMDUR [Suspect]
     Active Substance: ISOSORBIDE MONONITRATE
     Dosage: 120 MG,  AT BEDTIME
     Route: 065
  8. FRUSEMIDE [Concomitant]
     Active Substance: FUROSEMIDE
     Dosage: UNK
  9. ASPIRIN. [Concomitant]
     Active Substance: ASPIRIN
     Dosage: UNK
  10. IVABRADINE [Concomitant]
     Active Substance: IVABRADINE
     Dosage: UNK

REACTIONS (17)
  - Hypertension [Unknown]
  - Weight decreased [Unknown]
  - Myocardial infarction [Unknown]
  - Pulmonary oedema [Unknown]
  - Coronary artery occlusion [Unknown]
  - Mitral valve incompetence [Unknown]
  - Dizziness [Unknown]
  - Oedema peripheral [Unknown]
  - Type 2 diabetes mellitus [Unknown]
  - Overweight [Unknown]
  - Disturbance in attention [Unknown]
  - Fatigue [Unknown]
  - Pulmonary hypertension [Unknown]
  - Ejection fraction decreased [Unknown]
  - Iron deficiency [Unknown]
  - Asthenia [Unknown]
  - Dyspnoea exertional [Unknown]
